FAERS Safety Report 14636814 (Version 5)
Quarter: 2021Q2

REPORT INFORMATION
  Report Type: Spontaneous
  Country: None (occurrence: CZ)
  Receive Date: 20180314
  Receipt Date: 20210409
  Transmission Date: 20210716
  Serious: Yes (Other)
  Sender: FDA-Public Use
  Company Number: CZ-SA-2018SA033133

PATIENT
  Age: 65 Year
  Sex: Male
  Weight: 80 kg

DRUGS (8)
  1. PREDNISONE. [Suspect]
     Active Substance: PREDNISONE
     Dosage: 15 MG,QD
     Route: 065
     Dates: start: 2016, end: 201702
  2. PREDNISONE. [Suspect]
     Active Substance: PREDNISONE
     Dosage: 20 MG,QD
     Route: 065
     Dates: start: 2016
  3. PREDNISONE. [Suspect]
     Active Substance: PREDNISONE
     Dosage: 5 MG,QD
     Route: 065
     Dates: start: 2017, end: 201706
  4. PREDNISONE. [Suspect]
     Active Substance: PREDNISONE
     Dosage: 2.5 MG,QD
     Route: 065
     Dates: start: 201706
  5. PREDNISONE. [Suspect]
     Active Substance: PREDNISONE
     Dosage: DECREASE THE DOSE RADICALLY
     Route: 065
  6. PREDNISONE. [Suspect]
     Active Substance: PREDNISONE
     Dosage: 40 MG,QD
     Route: 065
     Dates: end: 2016
  7. PREDNISONE. [Suspect]
     Active Substance: PREDNISONE
     Indication: STILL^S DISEASE
     Dosage: 80 MG,QD
     Route: 065
     Dates: start: 201512
  8. PREDNISONE. [Suspect]
     Active Substance: PREDNISONE
     Dosage: 20 MG,QD
     Route: 065
     Dates: start: 201702

REACTIONS (14)
  - Inflammation [Recovering/Resolving]
  - Night sweats [Recovering/Resolving]
  - Still^s disease [Recovering/Resolving]
  - Rebound effect [Recovering/Resolving]
  - Pyrexia [Recovered/Resolved]
  - Lymphadenopathy [Recovering/Resolving]
  - Lymphadenopathy mediastinal [Recovering/Resolving]
  - Leukocytosis [Recovered/Resolved]
  - Steroid diabetes [Recovering/Resolving]
  - Arthralgia [Recovered/Resolved]
  - Retroperitoneal lymphadenopathy [Recovering/Resolving]
  - Anaemia of chronic disease [Recovering/Resolving]
  - Diabetic metabolic decompensation [Recovering/Resolving]
  - Drug intolerance [Recovering/Resolving]

NARRATIVE: CASE EVENT DATE: 201512
